FAERS Safety Report 6749536-9 (Version None)
Quarter: 2010Q2

REPORT INFORMATION
  Report Type: 
  Country: None (occurrence: None)
  Receive Date: 20100601
  Receipt Date: 20100525
  Transmission Date: 20101027
  Serious: Yes (Hospitalization)
  Sender: FDA-Public Use
  Company Number: FR-GILEAD-2010-0029424

PATIENT
  Sex: Male

DRUGS (10)
  1. ATRIPLA [Suspect]
     Indication: HIV INFECTION
     Route: 048
     Dates: start: 20090701, end: 20100501
  2. DAFALGAN [Suspect]
     Route: 048
     Dates: start: 20100301, end: 20100428
  3. ZAMUDOL [Suspect]
     Route: 048
     Dates: start: 20100301
  4. ZAMUDOL [Suspect]
     Route: 048
     Dates: start: 20100407, end: 20100428
  5. STABLON [Suspect]
     Route: 048
     Dates: start: 20090101, end: 20100502
  6. IRBESARTAN [Suspect]
     Route: 048
     Dates: start: 20040101, end: 20100501
  7. NEURONTIN [Suspect]
     Route: 048
     Dates: end: 20100503
  8. METOJECT [Suspect]
     Dates: start: 20090928
  9. METOJECT [Suspect]
     Dates: start: 20100407, end: 20100419
  10. ENBREL [Suspect]
     Route: 058
     Dates: start: 20091101, end: 20100429

REACTIONS (6)
  - BACTERIAL INFECTION [None]
  - LUNG DISORDER [None]
  - MUSCULOSKELETAL CHEST PAIN [None]
  - PANCYTOPENIA [None]
  - PYREXIA [None]
  - SECRETION DISCHARGE [None]
